FAERS Safety Report 11922279 (Version 1)
Quarter: 2016Q1

REPORT INFORMATION
  Report Type: Spontaneous
  Country: US (occurrence: US)
  Receive Date: 20160115
  Receipt Date: 20160115
  Transmission Date: 20160526
  Serious: Yes (Death)
  Sender: FDA-Public Use
  Company Number: US-LPDUSPRD-20160020

PATIENT
  Age: 56 Year
  Sex: Female

DRUGS (5)
  1. LEVETIRACETAM INJECTION (0517-3605-01) [Suspect]
     Active Substance: LEVETIRACETAM
     Dosage: UNKNOWN
     Route: 065
  2. DULOXETINE. [Suspect]
     Active Substance: DULOXETINE
     Dosage: UNKNOWN
     Route: 065
  3. ACETAMINOPHEN. [Suspect]
     Active Substance: ACETAMINOPHEN
     Dosage: UNKNOWN
     Route: 065
  4. BUTALBITAL [Suspect]
     Active Substance: BUTALBITAL
     Dosage: UNKNOWN
     Route: 065
  5. SKELAXIN [Suspect]
     Active Substance: METAXALONE
     Dosage: DOSE UNKNOWN
     Route: 065

REACTIONS (1)
  - Completed suicide [Fatal]
